FAERS Safety Report 19758138 (Version 8)
Quarter: 2023Q2

REPORT INFORMATION
  Report Type: Report from Study
  Country: US (occurrence: US)
  Receive Date: 20210827
  Receipt Date: 20230519
  Transmission Date: 20230721
  Serious: Yes (Other)
  Sender: FDA-Public Use
  Company Number: NVSC2021US190307

PATIENT
  Age: 11 Month
  Sex: Female

DRUGS (10)
  1. ZOLGENSMA [Suspect]
     Active Substance: ONASEMNOGENE ABEPARVOVEC-XIOI
     Indication: Spinal muscular atrophy
     Dosage: 1.1 X E14VG/KG, ONCE/SINGLE
     Route: 042
     Dates: start: 20210805
  2. PREDNISOLONE [Concomitant]
     Active Substance: PREDNISOLONE
     Indication: Spinal muscular atrophy
     Dosage: 8.1 MG
     Route: 065
     Dates: start: 202107
  3. PREDNISOLONE [Concomitant]
     Active Substance: PREDNISOLONE
     Dosage: 8.1 MG
     Route: 065
     Dates: start: 20210804, end: 20211013
  4. PREDNISOLONE [Concomitant]
     Active Substance: PREDNISOLONE
     Dosage: 6.6 MG
     Route: 065
     Dates: start: 20210916, end: 20210922
  5. PREDNISOLONE [Concomitant]
     Active Substance: PREDNISOLONE
     Dosage: 4.8 MG
     Route: 065
     Dates: start: 20210923, end: 20210929
  6. PREDNISOLONE [Concomitant]
     Active Substance: PREDNISOLONE
     Dosage: 3.3 MG
     Route: 065
     Dates: start: 20210930, end: 20211006
  7. PREDNISOLONE [Concomitant]
     Active Substance: PREDNISOLONE
     Dosage: 1.5 MG
     Route: 065
     Dates: start: 20211007, end: 20211013
  8. PREDNISOLONE [Concomitant]
     Active Substance: PREDNISOLONE
     Dosage: 8.1 MG
     Route: 065
     Dates: start: 20210730, end: 20210909
  9. PREDNISOLONE [Concomitant]
     Active Substance: PREDNISOLONE
     Dosage: 8.1 MG
     Route: 065
     Dates: start: 20210910, end: 20211108
  10. FAMOTIDINE [Concomitant]
     Active Substance: FAMOTIDINE
     Indication: Spinal muscular atrophy
     Dosage: 4 MG
     Route: 065
     Dates: start: 20210804, end: 20211013

REACTIONS (8)
  - Hepatotoxicity [Recovered/Resolved]
  - Thrombocytopenia [Recovered/Resolved]
  - Troponin increased [Recovered/Resolved]
  - Skin lesion [Recovered/Resolved]
  - Pyrexia [Recovered/Resolved]
  - Vomiting [Recovered/Resolved]
  - Constipation [Recovered/Resolved]
  - Rhinorrhoea [Recovered/Resolved]

NARRATIVE: CASE EVENT DATE: 20210807
